FAERS Safety Report 6380934-1 (Version None)
Quarter: 2009Q3

REPORT INFORMATION
  Report Type: 
  Country: None (occurrence: None)
  Receive Date: 20090925
  Receipt Date: 20090925
  Transmission Date: 20100115
  Serious: Yes (Death)
  Sender: FDA-Public Use
  Company Number: None

PATIENT
  Sex: Male
  Weight: 136.4 kg

DRUGS (5)
  1. EFFEXOR XR [Suspect]
     Indication: DEPRESSION
     Dosage: 150 MG 1 TIME DAILY BY MOUTH
     Route: 048
  2. EFFEXOR XR [Suspect]
     Indication: INSOMNIA
     Dosage: 150 MG 1 TIME DAILY BY MOUTH
     Route: 048
  3. EFFEXOR XR [Suspect]
     Indication: PAIN
     Dosage: 150 MG 1 TIME DAILY BY MOUTH
     Route: 048
  4. REMERON [Suspect]
     Indication: DEPRESSION
     Dosage: 45 MG AT BEDTIME BY MOUTH, ABOUT MAY 2008 INCREASING AMOUNT
     Route: 048
     Dates: start: 20080501
  5. REMERON [Suspect]
     Indication: INSOMNIA
     Dosage: 45 MG AT BEDTIME BY MOUTH, ABOUT MAY 2008 INCREASING AMOUNT
     Route: 048
     Dates: start: 20080501

REACTIONS (8)
  - ABDOMINAL PAIN [None]
  - EYE PAIN [None]
  - HEPATIC STEATOSIS [None]
  - HYPERSOMNIA [None]
  - PULMONARY CONGESTION [None]
  - SEROTONIN SYNDROME [None]
  - SUDDEN DEATH [None]
  - VOMITING [None]
